FAERS Safety Report 6162639-5 (Version None)
Quarter: 2009Q2

REPORT INFORMATION
  Report Type: 
  Country: None (occurrence: None)
  Receive Date: 20090421
  Receipt Date: 20080307
  Transmission Date: 20091009
  Serious: No
  Sender: FDA-Public Use
  Company Number: US-ASTRAZENECA-2008UW04784

PATIENT
  Age: 83 Year
  Sex: Male
  Weight: 90.3 kg

DRUGS (1)
  1. CASODEX [Suspect]
     Route: 048
     Dates: start: 20080301

REACTIONS (1)
  - MUSCULOSKELETAL PAIN [None]
